FAERS Safety Report 23303419 (Version 2)
Quarter: 2024Q1

REPORT INFORMATION
  Report Type: Report from Study
  Country: BR (occurrence: None)
  Receive Date: 20231215
  Receipt Date: 20240130
  Transmission Date: 20240410
  Serious: Yes (Hospitalization)
  Sender: FDA-Public Use
  Company Number: 2023A282391

PATIENT
  Age: 70 Year
  Sex: Male

DRUGS (5)
  1. DAPAGLIFLOZIN [Suspect]
     Active Substance: DAPAGLIFLOZIN
     Indication: Type 2 diabetes mellitus
     Dosage: ONCE AFTER LUNCH
     Route: 048
     Dates: start: 202307, end: 2023
  2. DAPAGLIFLOZIN [Suspect]
     Active Substance: DAPAGLIFLOZIN
     Indication: Type 2 diabetes mellitus
     Dosage: ONCE AFTER LUNCH
     Route: 048
     Dates: start: 20231206
  3. ASPIRIN [Concomitant]
     Active Substance: ASPIRIN
  4. METFORMIN HYDROCHLORIDE [Concomitant]
     Active Substance: METFORMIN HYDROCHLORIDE
  5. INSULIN NOS [Concomitant]
     Active Substance: INSULIN NOS

REACTIONS (12)
  - Condition aggravated [Unknown]
  - Illness [Unknown]
  - Gait disturbance [Unknown]
  - Pain [Unknown]
  - Hypotension [Unknown]
  - Headache [Unknown]
  - Pain in extremity [Unknown]
  - Chest pain [Unknown]
  - Dyspnoea [Unknown]
  - Back pain [Unknown]
  - Intentional product misuse [Unknown]
  - Product dose omission issue [Unknown]

NARRATIVE: CASE EVENT DATE: 20230101
